FAERS Safety Report 21402676 (Version 2)
Quarter: 2022Q4

REPORT INFORMATION
  Report Type: Report from Study
  Country: US (occurrence: US)
  Receive Date: 20221003
  Receipt Date: 20221116
  Transmission Date: 20230113
  Serious: Yes (Other)
  Sender: FDA-Public Use
  Company Number: US-GILEAD-2022-0599770

PATIENT
  Age: 35 Year
  Sex: Male

DRUGS (2)
  1. AMBRISENTAN [Suspect]
     Active Substance: AMBRISENTAN
     Indication: Pulmonary hypertension
     Dosage: 10 MG, QD
     Route: 065
     Dates: start: 20110506
  2. UPTRAVI [Suspect]
     Active Substance: SELEXIPAG
     Indication: Pulmonary hypertension
     Dosage: 1600 NG, BID
     Route: 065
     Dates: start: 202107

REACTIONS (6)
  - Pericardial effusion [Unknown]
  - Pain in jaw [Unknown]
  - Headache [Unknown]
  - Flushing [Unknown]
  - Nausea [Unknown]
  - Dyspnoea [Unknown]
